FAERS Safety Report 16513793 (Version 1)
Quarter: 2019Q3

REPORT INFORMATION
  Report Type: Spontaneous
  Country: US (occurrence: US)
  Receive Date: 20190702
  Receipt Date: 20190702
  Transmission Date: 20191004
  Serious: No
  Sender: FDA-Public Use
  Company Number: US-009507513-1907USA000127

PATIENT
  Age: 67 Year
  Sex: Male

DRUGS (6)
  1. METFORMIN [Concomitant]
     Active Substance: METFORMIN HYDROCHLORIDE
  2. ATORVASTATIN [Concomitant]
     Active Substance: ATORVASTATIN
  3. LISINOPRIL. [Concomitant]
     Active Substance: LISINOPRIL
  4. FENOFIBRATE. [Concomitant]
     Active Substance: FENOFIBRATE
  5. FINASTERIDE. [Concomitant]
     Active Substance: FINASTERIDE
  6. KEYTRUDA [Suspect]
     Active Substance: PEMBROLIZUMAB
     Indication: BLADDER CANCER
     Dosage: UNK, Q3W
     Route: 042
     Dates: start: 20190520

REACTIONS (2)
  - Rash generalised [Not Recovered/Not Resolved]
  - Product use in unapproved indication [Unknown]

NARRATIVE: CASE EVENT DATE: 20190520
